FAERS Safety Report 4336572-5 (Version None)
Quarter: 2004Q2

REPORT INFORMATION
  Report Type: 
  Country: None (occurrence: None)
  Receive Date: 20040409
  Receipt Date: 20040409
  Transmission Date: 20050107
  Serious: Yes (Disabling)
  Sender: FDA-Public Use
  Company Number: None

PATIENT
  Age: 59 Year
  Sex: Male
  Weight: 119 kg

DRUGS (3)
  1. INTEGRILIN [Suspect]
     Indication: MYOCARDIAL INFARCTION
     Dosage: 20 ML/HR CONT INTRAVENOUS INFUS
     Route: 017
     Dates: start: 20031217, end: 20031219
  2. PLAVIX [Suspect]
     Indication: CORONARY ANGIOPLASTY
     Dosage: 75 MG DAILY ORAL
     Route: 048
     Dates: start: 20031217, end: 20031217
  3. ASPIRIN [Concomitant]

REACTIONS (8)
  - AGITATION [None]
  - APHASIA [None]
  - CEREBRAL HAEMORRHAGE [None]
  - COAGULOPATHY [None]
  - CONFUSIONAL STATE [None]
  - DISORIENTATION [None]
  - FACIAL PALSY [None]
  - MONOPARESIS [None]
